FAERS Safety Report 11744221 (Version 2)
Quarter: 2015Q4

REPORT INFORMATION
  Report Type: Spontaneous
  Country: CN (occurrence: CN)
  Receive Date: 20151116
  Receipt Date: 20151130
  Transmission Date: 20160304
  Serious: Yes (Other)
  Sender: FDA-Public Use
  Company Number: CN-ASTELLAS-2015US042268

PATIENT
  Sex: Female

DRUGS (2)
  1. ERLOTINIB [Suspect]
     Active Substance: ERLOTINIB
     Indication: METASTASES TO CENTRAL NERVOUS SYSTEM
  2. ERLOTINIB [Suspect]
     Active Substance: ERLOTINIB
     Indication: BRONCHIOLOALVEOLAR CARCINOMA
     Route: 048

REACTIONS (2)
  - Ocular hyperaemia [Unknown]
  - Blindness [Not Recovered/Not Resolved]
